FAERS Safety Report 4867934-5 (Version None)
Quarter: 2005Q4

REPORT INFORMATION
  Report Type: 
  Country: None (occurrence: None)
  Receive Date: 20051227
  Receipt Date: 20051216
  Transmission Date: 20060501
  Serious: Yes (Hospitalization)
  Sender: FDA-Public Use
  Company Number: 8013921

PATIENT
  Age: 65 Year
  Sex: Female

DRUGS (4)
  1. KEPPRA [Suspect]
     Indication: EPILEPSY
     Dosage: 250 MG 3/D PO
     Route: 048
     Dates: start: 20050901, end: 20051119
  2. NEURONTIN [Suspect]
     Indication: EPILEPSY
     Dosage: 300 MG /D PO
     Route: 048
     Dates: start: 20051201
  3. NEURONTIN [Suspect]
     Indication: EPILEPSY
     Dosage: 300 MG 2/D PO
     Route: 048
     Dates: start: 20051201
  4. NEURONTIN [Suspect]
     Indication: EPILEPSY
     Dosage: 300 MG 3/D PO
     Route: 048
     Dates: start: 20051201

REACTIONS (3)
  - DIZZINESS [None]
  - MULTIPLE SCLEROSIS [None]
  - TACHYCARDIA [None]
